FAERS Safety Report 11445059 (Version 1)
Quarter: 2015Q3

REPORT INFORMATION
  Report Type: Spontaneous
  Country: US (occurrence: None)
  Receive Date: 20150901
  Receipt Date: 20150901
  Transmission Date: 20151125
  Serious: Yes (Disabling, Other)
  Sender: FDA-Public Use
  Company Number: None

PATIENT
  Age: 74 Year
  Sex: Male
  Weight: 79.83 kg

DRUGS (16)
  1. ALA [Concomitant]
  2. VIT. K [Concomitant]
  3. PROLIA [Suspect]
     Active Substance: DENOSUMAB
     Indication: OSTEOPOROSIS
     Dosage: Q6M SINGLE USE PREFILLED SYRINGE, INJECTION
     Dates: start: 20150309, end: 20150309
  4. LISINOPRIL. [Concomitant]
     Active Substance: LISINOPRIL
  5. OLIVE LEAF [Concomitant]
  6. DORZOLAMIDE [Concomitant]
     Active Substance: DORZOLAMIDE
  7. VITAMIN B12 [Concomitant]
     Active Substance: CYANOCOBALAMIN
  8. MULTIVITAMIN [Concomitant]
     Active Substance: VITAMINS
  9. GRAPESEED EXTRACT [Concomitant]
  10. D3 [Concomitant]
     Active Substance: 25-HYDROXYCHOLECALCIFEROL, 5-TRANS-
  11. CALCIUM [Concomitant]
     Active Substance: CALCIUM
  12. OMEGA 3 OIL [Concomitant]
  13. CARBAMAZEPINE. [Concomitant]
     Active Substance: CARBAMAZEPINE
  14. CARVEDILOL. [Concomitant]
     Active Substance: CARVEDILOL
  15. TIMOLOL. [Concomitant]
     Active Substance: TIMOLOL
  16. CURCUMIN [Concomitant]
     Active Substance: CURCUMIN

REACTIONS (7)
  - Myalgia [None]
  - Diarrhoea [None]
  - Dyspnoea [None]
  - Bladder disorder [None]
  - Asthenia [None]
  - Nausea [None]
  - Dizziness [None]

NARRATIVE: CASE EVENT DATE: 20150309
